FAERS Safety Report 22222183 (Version 1)
Quarter: 2023Q2

REPORT INFORMATION
  Report Type: Report from Study
  Country: US (occurrence: US)
  Receive Date: 20230418
  Receipt Date: 20230418
  Transmission Date: 20230721
  Serious: Yes (Other)
  Sender: FDA-Public Use
  Company Number: US-BTGSP-US-BTGSP-23-0075

PATIENT
  Age: 7 Year
  Sex: Male

DRUGS (4)
  1. CROFAB [Suspect]
     Active Substance: CROTALIDAE POLYVALENT IMMUNE FAB (OVINE)
     Indication: Snake bite
     Dosage: 6 VIALS, 2 HOURS AFTER THE BITE
     Route: 065
     Dates: start: 202305
  2. ANAVIP [Suspect]
     Active Substance: PIT VIPER (CROTALINAE) IMMUNE GLOBULIN ANTIVENIN (EQUINE)
     Indication: Snake bite
     Dosage: 10 VIALS, 7 HOURS AFTER THE SNAKE BITE
     Route: 065
     Dates: start: 202305
  3. ANAVIP [Suspect]
     Active Substance: PIT VIPER (CROTALINAE) IMMUNE GLOBULIN ANTIVENIN (EQUINE)
     Dosage: 10 VIALS, 11 HOURS AFTER THE SNAKE BITE
     Route: 065
     Dates: start: 202305
  4. ANAVIP [Suspect]
     Active Substance: PIT VIPER (CROTALINAE) IMMUNE GLOBULIN ANTIVENIN (EQUINE)
     Dosage: 6 VIALS, 16 HOURS AFTER THE SNAKE BITE
     Dates: start: 202305

REACTIONS (6)
  - Mobility decreased [Unknown]
  - Tissue injury [Unknown]
  - Prothrombin time prolonged [Unknown]
  - Therapy change [Unknown]
  - Off label use [Unknown]
  - Underdose [Unknown]
